FAERS Safety Report 14851404 (Version 2)
Quarter: 2018Q2

REPORT INFORMATION
  Report Type: Spontaneous
  Country: PT (occurrence: PT)
  Receive Date: 20180507
  Receipt Date: 20180525
  Transmission Date: 20180711
  Serious: Yes (Other)
  Sender: FDA-Public Use
  Company Number: PT-OCTA-WIL01418PT

PATIENT
  Age: 51 Year
  Sex: Female
  Weight: 80 kg

DRUGS (2)
  1. RAMIPRIL. [Concomitant]
     Active Substance: RAMIPRIL
     Indication: HYPERTENSION
     Route: 048
  2. WILATE - VON WILLEBRAND FACTOR/COAGULATION FACTOR VIII COMPLEX (HUMAN) [Suspect]
     Active Substance: HUMAN COAGULATION FACTOR VIII/VON WILLEBRAND FACTOR COMPLEX
     Indication: THERAPEUTIC PROCEDURE
     Route: 042
     Dates: start: 20180420, end: 20180420

REACTIONS (3)
  - Chest pain [Recovered/Resolved]
  - Dyspnoea [Recovered/Resolved]
  - Rash macular [Recovered/Resolved]

NARRATIVE: CASE EVENT DATE: 20180420
